FAERS Safety Report 8905356 (Version 2)
Quarter: 2013Q1

REPORT INFORMATION
  Report Type: Spontaneous
  Country: US (occurrence: US)
  Receive Date: 20121109
  Receipt Date: 20130122
  Transmission Date: 20140127
  Serious: No
  Sender: FDA-Public Use
  Company Number: US-009507513-1210USA014117

PATIENT
  Sex: Female

DRUGS (1)
  1. PROVENTIL [Suspect]
     Dosage: 2 DF, EVERY 4-6 HOURS AS NEEDED
     Route: 055

REACTIONS (3)
  - Product container issue [Unknown]
  - Product quality issue [Unknown]
  - Drug dose omission [Unknown]
